FAERS Safety Report 4269589-X (Version None)
Quarter: 2004Q1

REPORT INFORMATION
  Report Type: 
  Country: None (occurrence: None)
  Receive Date: 20040112
  Receipt Date: 20031229
  Transmission Date: 20041129
  Serious: Yes (Hospitalization)
  Sender: FDA-Public Use
  Company Number: 200323158GDDC

PATIENT
  Age: 88 Year
  Sex: Male

DRUGS (4)
  1. INDAPAMIDE [Suspect]
     Indication: ESSENTIAL HYPERTENSION
     Dosage: PO
     Route: 048
     Dates: end: 20030905
  2. CRYOPHARMA [Suspect]
     Indication: SKIN PAPILLOMA
     Dosage: TOP
     Route: 061
     Dates: end: 20030905
  3. AMLODIPINE BESYLATE [Suspect]
     Indication: HYPERTENSION
     Dosage: PO
     Route: 048
  4. CHLORAMBUCIL [Suspect]
     Indication: CHRONIC LYMPHOCYTIC LEUKAEMIA
     Dates: start: 20030101, end: 20031201

REACTIONS (5)
  - ACINETOBACTER INFECTION [None]
  - APPLICATION SITE REACTION [None]
  - FINGER AMPUTATION [None]
  - SKIN NECROSIS [None]
  - STAPHYLOCOCCAL INFECTION [None]
